FAERS Safety Report 4896889-2 (Version None)
Quarter: 2006Q1

REPORT INFORMATION
  Report Type: 
  Country: None (occurrence: None)
  Receive Date: 20060126
  Receipt Date: 20060112
  Transmission Date: 20060701
  Serious: Yes (Hospitalization)
  Sender: FDA-Public Use
  Company Number: ENTC2005-0344

PATIENT
  Age: 73 Year
  Sex: Male

DRUGS (1)
  1. STALEVO 100 [Suspect]
     Indication: PARKINSON'S DISEASE
     Dosage: 4 ORAL

REACTIONS (3)
  - DYSPNOEA [None]
  - FALL [None]
  - ORAL ADMINISTRATION COMPLICATION [None]
